FAERS Safety Report 18292269 (Version 1)
Quarter: 2020Q3

REPORT INFORMATION
  Report Type: Spontaneous
  Country: US (occurrence: US)
  Receive Date: 20200922
  Receipt Date: 20200922
  Transmission Date: 20201103
  Serious: No
  Sender: FDA-Public Use
  Company Number: US-CISBIO-199400170

PATIENT
  Age: 47 Year
  Sex: Male

DRUGS (1)
  1. THALLOUS CHLORIDE TL 201 [Suspect]
     Active Substance: THALLOUS CHLORIDE TL-201
     Indication: CARDIAC STRESS TEST
     Route: 051

REACTIONS (4)
  - Pyrexia [Recovered/Resolved]
  - Choking sensation [Recovered/Resolved]
  - Myalgia [Recovered/Resolved]
  - Chills [Recovered/Resolved]
